FAERS Safety Report 24896077 (Version 1)
Quarter: 2025Q1

REPORT INFORMATION
  Report Type: Spontaneous
  Country: CN (occurrence: CN)
  Receive Date: 20250128
  Receipt Date: 20250128
  Transmission Date: 20250409
  Serious: Yes (Other)
  Sender: ORGANON
  Company Number: CN-ORGANON-O2501CHN002681

PATIENT
  Age: 72 Year
  Sex: Female
  Weight: 66 kg

DRUGS (4)
  1. DIPROSPAN [Suspect]
     Active Substance: BETAMETHASONE DIPROPIONATE\BETAMETHASONE SODIUM PHOSPHATE
     Indication: Herpes zoster infection neurological
     Dosage: 7MG, QD,  EPIDURAL
     Route: 008
     Dates: start: 20250110, end: 20250110
  2. SODIUM CHLORIDE [Concomitant]
     Active Substance: SODIUM CHLORIDE
     Indication: Herpes zoster infection neurological
     Dosage: 5ML, QD, EPIDURAL
     Route: 008
     Dates: start: 20250110, end: 20250110
  3. LIDOCAINE HYDROCHLORIDE [Concomitant]
     Active Substance: LIDOCAINE HYDROCHLORIDE
     Indication: Herpes zoster infection neurological
     Dosage: 1ML, QD, EPIDURAL
     Route: 008
     Dates: start: 20250110, end: 20250110
  4. VITAMIN B12 [Concomitant]
     Active Substance: CYANOCOBALAMIN
     Indication: Herpes zoster infection neurological
     Dosage: 1.5MG, QD, EPIDURAL
     Route: 008
     Dates: start: 20250110, end: 20250110

REACTIONS (2)
  - Tremor [Recovered/Resolved]
  - Product use in unapproved indication [Unknown]

NARRATIVE: CASE EVENT DATE: 20250110
